FAERS Safety Report 5528089-7 (Version None)
Quarter: 2007Q4

REPORT INFORMATION
  Report Type: 
  Country: None (occurrence: None)
  Receive Date: 20071126
  Receipt Date: 20071126
  Transmission Date: 20080405
  Serious: No
  Sender: FDA-Public Use
  Company Number: None

PATIENT
  Age: 72 Year
  Sex: Female
  Weight: 74.3899 kg

DRUGS (2)
  1. IC BENZINATE 100   100MG [Suspect]
     Indication: BRONCHITIS
     Dosage: 2 PEARLS  Q 8 HRS PO
     Route: 048
     Dates: start: 20071118, end: 20071122
  2. IC MUCINEX DM   TAB ADA [Suspect]
     Indication: BRONCHITIS
     Dosage: 1 TAB  Q 12 HRS  PO
     Route: 048
     Dates: start: 20071118, end: 20071122

REACTIONS (6)
  - ASTHENIA [None]
  - DYSPNOEA [None]
  - INSOMNIA [None]
  - MALAISE [None]
  - RETCHING [None]
  - VOMITING [None]
